FAERS Safety Report 6387932-2 (Version None)
Quarter: 2009Q4

REPORT INFORMATION
  Report Type: 
  Country: None (occurrence: None)
  Receive Date: 20091005
  Receipt Date: 20090924
  Transmission Date: 20100525
  Serious: Yes (Hospitalization)
  Sender: FDA-Public Use
  Company Number: US-AMGEN-QUU366269

PATIENT
  Sex: Male

DRUGS (16)
  1. NEUPOGEN [Suspect]
     Indication: MYELODYSPLASTIC SYNDROME
     Dates: start: 20060101
  2. PROCRIT [Suspect]
     Indication: MYELODYSPLASTIC SYNDROME
  3. REVLIMID [Concomitant]
  4. SEROQUEL [Concomitant]
  5. EFFEXOR [Concomitant]
  6. SINGULAIR [Concomitant]
  7. CITALOPRAM HYDROBROMIDE [Concomitant]
  8. TORSEMIDE [Concomitant]
  9. NEXIUM [Concomitant]
  10. LEVOXYL [Concomitant]
  11. B COMPLEX ELX [Concomitant]
  12. POTASSIUM CHLORIDE [Concomitant]
  13. FLOMAX [Concomitant]
  14. FEXOFENADINE [Concomitant]
  15. DIOVAN [Concomitant]
  16. NIASPAN [Concomitant]

REACTIONS (5)
  - BACK PAIN [None]
  - FULL BLOOD COUNT DECREASED [None]
  - PLATELET COUNT DECREASED [None]
  - PRURITUS [None]
  - RASH [None]
